FAERS Safety Report 7371604-1 (Version None)
Quarter: 2011Q1

REPORT INFORMATION
  Report Type: 
  Country: None (occurrence: None)
  Receive Date: 20110316
  Receipt Date: 20110216
  Transmission Date: 20110831
  Serious: Yes (Disabling)
  Sender: FDA-Public Use
  Company Number: 2010MA002723

PATIENT
  Age: 59 Year
  Sex: Male

DRUGS (11)
  1. CALCICHEW ALFACALCIDOL [Concomitant]
  2. PROGRAF [Concomitant]
  3. SODIUM BICARBONATE [Concomitant]
  4. ARANESP [Concomitant]
  5. CELLCEPT [Concomitant]
  6. DALTEPARIN [Concomitant]
  7. SULFATRIM PEDIATRIC [Suspect]
     Indication: PNEUMOCYSTIS JIROVECI PNEUMONIA
     Dosage: 3840 MG;BID;IV
     Route: 042
  8. PREDNISOLONE [Concomitant]
  9. ACYCLOVIR [Concomitant]
  10. TAZOCIN [Concomitant]
  11. GLICLAZIDE [Concomitant]

REACTIONS (4)
  - MUSCLE TWITCHING [None]
  - ABNORMAL BEHAVIOUR [None]
  - CONFUSIONAL STATE [None]
  - AGITATION [None]
